FAERS Safety Report 22281124 (Version 1)
Quarter: 2023Q2

REPORT INFORMATION
  Report Type: Spontaneous
  Country: CA (occurrence: CA)
  Receive Date: 20230504
  Receipt Date: 20230504
  Transmission Date: 20230722
  Serious: Yes (Other)
  Sender: FDA-Public Use
  Company Number: CA-TEVA-2023-CA-2881457

PATIENT
  Age: 75 Year
  Sex: Female
  Weight: 56 kg

DRUGS (6)
  1. FULVESTRANT [Suspect]
     Active Substance: FULVESTRANT
     Indication: Breast cancer
     Route: 065
  2. LETROZOLE [Suspect]
     Active Substance: LETROZOLE
     Indication: Breast cancer
     Route: 065
  3. TAMOXIFEN [Suspect]
     Active Substance: TAMOXIFEN
     Indication: Breast cancer
     Route: 065
  4. LUPRON [Suspect]
     Active Substance: LEUPROLIDE ACETATE
     Indication: Breast cancer
     Route: 065
  5. MEGACE [Suspect]
     Active Substance: MEGESTROL ACETATE
     Indication: Breast cancer
     Dosage: 160 MILLIGRAM DAILY;
     Route: 065
  6. TRAMETINIB [Suspect]
     Active Substance: TRAMETINIB
     Indication: Ovarian cancer recurrent
     Dosage: 2 MILLIGRAM DAILY;
     Route: 048

REACTIONS (8)
  - Breast cancer [Recovered/Resolved]
  - Calcinosis [Recovered/Resolved]
  - Fatigue [Recovered/Resolved]
  - Lymphadenopathy [Recovered/Resolved]
  - Malignant neoplasm progression [Recovered/Resolved]
  - Metastases to lymph nodes [Recovered/Resolved]
  - Metastases to peritoneum [Recovered/Resolved]
  - Carbohydrate antigen 125 increased [Recovered/Resolved]
